FAERS Safety Report 9216801 (Version 2)
Quarter: 2013Q2

REPORT INFORMATION
  Report Type: Spontaneous
  Country: US (occurrence: US)
  Receive Date: 20130408
  Receipt Date: 20130411
  Transmission Date: 20140414
  Serious: Yes (Other)
  Sender: FDA-Public Use
  Company Number: US-PFIZER INC-2013108412

PATIENT
  Age: 50 Year
  Sex: Female
  Weight: 104 kg

DRUGS (7)
  1. PROTONIX [Suspect]
     Indication: DYSPEPSIA
     Dosage: 40 MG, 3X/DAY
  2. PROTONIX [Suspect]
     Indication: GASTRIC DISORDER
  3. LIPITOR [Suspect]
     Dosage: UNK
     Dates: start: 201303
  4. DIOVAN HCT [Concomitant]
     Dosage: UNK
  5. AMLODIPINE [Concomitant]
     Dosage: UNK
  6. METOPROLOL [Concomitant]
     Dosage: UNK
  7. ALEVE [Concomitant]
     Dosage: UNK

REACTIONS (1)
  - Diabetes mellitus [Unknown]
